FAERS Safety Report 6145001-0 (Version None)
Quarter: 2009Q2

REPORT INFORMATION
  Report Type: 
  Country: None (occurrence: None)
  Receive Date: 20090406
  Receipt Date: 20090324
  Transmission Date: 20091009
  Serious: Yes (Hospitalization, Disabling, Other)
  Sender: FDA-Public Use
  Company Number: DZ-ELI_LILLY_AND_COMPANY-DZ200903006483

PATIENT
  Sex: Female

DRUGS (2)
  1. ZYPREXA [Suspect]
     Indication: SCHIZOPHRENIA
     Dosage: 10 MG, UNK
     Route: 048
     Dates: start: 20050223, end: 20081112
  2. NOZINAN [Concomitant]
     Indication: SCHIZOPHRENIA
     Dosage: 50 MG, UNK

REACTIONS (3)
  - DIABETES MELLITUS [None]
  - GANGRENE [None]
  - LEG AMPUTATION [None]
